FAERS Safety Report 8189161-9 (Version None)
Quarter: 2012Q1

REPORT INFORMATION
  Report Type: 
  Country: None (occurrence: None)
  Receive Date: 20120306
  Receipt Date: 20120306
  Transmission Date: 20120608
  Serious: Yes (Other)
  Sender: FDA-Public Use
  Company Number: None

PATIENT
  Age: 61 Year
  Sex: Female
  Weight: 45.3597 kg

DRUGS (3)
  1. LEVOFLOXACIN [Suspect]
     Indication: ANTIBIOTIC PROPHYLAXIS
     Dosage: 1 TABLET 1 X DAY ORAL
     Route: 048
     Dates: start: 20120217, end: 20120220
  2. LEVOFLOXACIN [Suspect]
     Indication: POSTOPERATIVE CARE
     Dosage: 1 TABLET 1 X DAY ORAL
     Route: 048
     Dates: start: 20120217, end: 20120220
  3. OXYCODONE AND ACETAMINOPHEN [Concomitant]

REACTIONS (6)
  - HYPOAESTHESIA [None]
  - JOINT SWELLING [None]
  - MUSCULOSKELETAL STIFFNESS [None]
  - PRODUCT SUBSTITUTION ISSUE [None]
  - OEDEMA PERIPHERAL [None]
  - SKIN DISORDER [None]
